FAERS Safety Report 4775678-3 (Version None)
Quarter: 2005Q3

REPORT INFORMATION
  Report Type: 
  Country: None (occurrence: None)
  Receive Date: 20050920
  Receipt Date: 20050920
  Transmission Date: 20060218
  Serious: Yes (Hospitalization)
  Sender: FDA-Public Use
  Company Number: None

PATIENT
  Age: 17 Year
  Sex: Female

DRUGS (1)
  1. PEGASPARGINASE [Suspect]
     Indication: ACUTE LYMPHOCYTIC LEUKAEMIA

REACTIONS (4)
  - BLOOD ALBUMIN DECREASED [None]
  - FEBRILE NEUTROPENIA [None]
  - LIPIDS INCREASED [None]
  - LIVER FUNCTION TEST ABNORMAL [None]
